FAERS Safety Report 17614732 (Version 1)
Quarter: 2020Q2

REPORT INFORMATION
  Report Type: Spontaneous
  Country: FR (occurrence: FR)
  Receive Date: 20200402
  Receipt Date: 20200402
  Transmission Date: 20200713
  Serious: Yes (Other)
  Sender: FDA-Public Use
  Company Number: FR-SUN PHARMACEUTICAL INDUSTRIES LTD-2020RR-242612

PATIENT
  Age: 20 Year
  Sex: Male

DRUGS (2)
  1. CLARITHROMYCIN. [Suspect]
     Active Substance: CLARITHROMYCIN
     Indication: RHINITIS
     Dosage: ()
     Route: 048
     Dates: start: 20200308, end: 20200309
  2. PARACETAMOL [Concomitant]
     Active Substance: ACETAMINOPHEN
     Indication: RHINITIS
     Dosage: ()
     Route: 048
     Dates: start: 20200308

REACTIONS (2)
  - Pruritus genital [Recovering/Resolving]
  - Leukoplakia oral [Recovering/Resolving]

NARRATIVE: CASE EVENT DATE: 20200309
